FAERS Safety Report 22377882 (Version 1)
Quarter: 2023Q2

REPORT INFORMATION
  Report Type: Report from Study
  Country: US (occurrence: None)
  Receive Date: 20230529
  Receipt Date: 20230529
  Transmission Date: 20230722
  Serious: Yes (Death)
  Sender: FDA-Public Use
  Company Number: 2023A121998

PATIENT
  Age: 27550 Day
  Sex: Male

DRUGS (14)
  1. CALQUENCE [Suspect]
     Active Substance: ACALABRUTINIB
     Indication: Non-Hodgkin^s lymphoma
     Route: 048
  2. COMPAZINE [Concomitant]
     Active Substance: PROCHLORPERAZINE MALEATE
  3. DORZOLAMIDE [Concomitant]
     Active Substance: DORZOLAMIDE
  4. TIMOLOL [Concomitant]
     Active Substance: TIMOLOL
  5. LATANOPROST [Concomitant]
     Active Substance: LATANOPROST
  6. LEVAQUIN [Concomitant]
     Active Substance: LEVOFLOXACIN
  7. MULTIVITAMINS/FLUORIDE [Concomitant]
  8. ONDANSETRON [Concomitant]
     Active Substance: ONDANSETRON
  9. PRAVASTATIN [Concomitant]
     Active Substance: PRAVASTATIN
  10. RETACRIT [Concomitant]
     Active Substance: EPOETIN ALFA-EPBX
  11. TAMSULOSIN [Concomitant]
     Active Substance: TAMSULOSIN
  12. VITAMIN D3 [Concomitant]
     Active Substance: CHOLECALCIFEROL
  13. ATORVASTATIN [Concomitant]
     Active Substance: ATORVASTATIN
  14. SODIUM POLYSTYRENE SULFONATE [Concomitant]
     Active Substance: SODIUM POLYSTYRENE SULFONATE

REACTIONS (1)
  - Death [Fatal]

NARRATIVE: CASE EVENT DATE: 20230514
